FAERS Safety Report 8138486-1 (Version None)
Quarter: 2012Q1

REPORT INFORMATION
  Report Type: 
  Country: None (occurrence: None)
  Receive Date: 20120215
  Receipt Date: 20120208
  Transmission Date: 20120608
  Serious: Yes (Death)
  Sender: FDA-Public Use
  Company Number: KR-PFIZER INC-2012031274

PATIENT
  Age: 57 Year
  Sex: Female
  Weight: 40 kg

DRUGS (5)
  1. TEICOPLANIN [Concomitant]
  2. TIGECYCLINE [Suspect]
     Indication: SKIN INFECTION
     Dosage: 50 MG, 2X/DAY
     Route: 042
     Dates: start: 20111216, end: 20120104
  3. CEFTRIAXONE [Concomitant]
     Indication: INFECTION
     Dosage: UNK
     Dates: start: 20111205, end: 20111216
  4. TIGECYCLINE [Suspect]
     Indication: SOFT TISSUE INFECTION
  5. METRONIDAZOLE [Concomitant]

REACTIONS (2)
  - BLOOD BILIRUBIN INCREASED [None]
  - JAUNDICE [None]
